FAERS Safety Report 8362694-8 (Version None)
Quarter: 2012Q1

REPORT INFORMATION
  Report Type: 
  Country: None (occurrence: None)
  Receive Date: 20120323
  Receipt Date: 20111122
  Transmission Date: 20120608
  Serious: Yes (Hospitalization)
  Sender: FDA-Public Use
  Company Number: 163-21880-11113371

PATIENT
  Age: 61 Year
  Sex: Male

DRUGS (11)
  1. OMEPRAZOLE [Concomitant]
  2. ZOFRAN [Concomitant]
  3. SERTRALINE HYDROCHLORIDE [Concomitant]
  4. CALCIUM CARBONATE [Concomitant]
  5. ACYCLOIVR (ACICLOVIR) [Concomitant]
  6. DEXAMETHASONE [Concomitant]
  7. REVLIMID [Suspect]
     Indication: MULTIPLE MYELOMA
     Dosage: 25 MG, 1 IN 1 D, PO
     Route: 048
     Dates: start: 20090801
  8. BETHANECHOL (BETHANECHOL) [Concomitant]
  9. VELCADE [Concomitant]
  10. MULTIVITAMIN [Concomitant]
  11. BACTRIM [Concomitant]

REACTIONS (2)
  - RED BLOOD CELL COUNT DECREASED [None]
  - PLATELET COUNT DECREASED [None]
